FAERS Safety Report 20520763 (Version 1)
Quarter: 2022Q1

REPORT INFORMATION
  Report Type: Report from Study
  Country: US (occurrence: US)
  Receive Date: 20220225
  Receipt Date: 20220225
  Transmission Date: 20220424
  Serious: Yes (Other)
  Sender: FDA-Public Use
  Company Number: US-SEATTLE GENETICS-2022SGN01479

PATIENT
  Sex: Female

DRUGS (1)
  1. TUCATINIB [Suspect]
     Active Substance: TUCATINIB
     Indication: Breast cancer female
     Route: 065

REACTIONS (11)
  - Thrombosis [Unknown]
  - Weight fluctuation [Unknown]
  - Cough [Unknown]
  - Hypersomnia [Unknown]
  - Muscle spasms [Unknown]
  - Pruritus [Unknown]
  - Contusion [Unknown]
  - Injection site pain [Unknown]
  - Ear pain [Unknown]
  - Feeling cold [Unknown]
  - Product dose omission issue [Unknown]
